FAERS Safety Report 15498677 (Version 1)
Quarter: 2018Q4

REPORT INFORMATION
  Report Type: Spontaneous
  Country: US (occurrence: US)
  Receive Date: 20181015
  Receipt Date: 20181015
  Transmission Date: 20190205
  Serious: Yes (Hospitalization)
  Sender: FDA-Public Use
  Company Number: US-ASTELLAS-2018US043923

PATIENT
  Age: 68 Year
  Sex: Male

DRUGS (6)
  1. REGADENOSON [Suspect]
     Active Substance: REGADENOSON
     Indication: CARDIAC STRESS TEST
     Dosage: 0.4 MG, TOTAL DOSE (ADMINISTERED IV OVER 30 SECONDS)
     Route: 042
  2. CLOPIDOGREL [Concomitant]
     Active Substance: CLOPIDOGREL BISULFATE
     Indication: PRODUCT USED FOR UNKNOWN INDICATION
     Dosage: UNK UNK, UNKNOWN FREQ.
     Route: 065
  3. TETROFOSMIN. [Concomitant]
     Active Substance: TETROFOSMIN
     Indication: CARDIAC STRESS TEST
     Dosage: UNK UNK, UNKNOWN FREQ. (32.8 MCI (1214 MBQ) TC-99M TETROFOSMIN)
     Route: 065
  4. ASPIRIN. [Concomitant]
     Active Substance: ASPIRIN
     Indication: PRODUCT USED FOR UNKNOWN INDICATION
     Dosage: UNK UNK, UNKNOWN FREQ.
     Route: 065
  5. OMEPRAZOLE. [Concomitant]
     Active Substance: OMEPRAZOLE
     Indication: PRODUCT USED FOR UNKNOWN INDICATION
     Dosage: UNK UNK, UNKNOWN FREQ.
     Route: 065
  6. OXYCODONE [Concomitant]
     Active Substance: OXYCODONE
     Indication: PRODUCT USED FOR UNKNOWN INDICATION
     Dosage: UNK UNK, UNKNOWN FREQ.
     Route: 065

REACTIONS (4)
  - Chest pain [Recovered/Resolved]
  - Electrocardiogram ST segment depression [Recovered/Resolved]
  - Incorrect product administration duration [Unknown]
  - Electrocardiogram QRS complex abnormal [Recovered/Resolved]
